FAERS Safety Report 8007978-8 (Version None)
Quarter: 2011Q4

REPORT INFORMATION
  Report Type: 
  Country: None (occurrence: None)
  Receive Date: 20111227
  Receipt Date: 20111216
  Transmission Date: 20120403
  Serious: Yes (Hospitalization)
  Sender: FDA-Public Use
  Company Number: PHHY2011NL107422

PATIENT
  Sex: Female
  Weight: 52 kg

DRUGS (4)
  1. ZOMETA [Suspect]
     Indication: HYPERCALCAEMIA
     Dosage: 4 MG/ 5 ML ONCE PER 28 DAYS
     Dates: start: 20111024
  2. SPIRIVA [Concomitant]
  3. MORPHINE [Concomitant]
  4. FENTANYL [Concomitant]

REACTIONS (2)
  - LUNG NEOPLASM [None]
  - CHEST DISCOMFORT [None]
